FAERS Safety Report 12726545 (Version 1)
Quarter: 2016Q3

REPORT INFORMATION
  Report Type: Spontaneous
  Country: US (occurrence: US)
  Receive Date: 20160908
  Receipt Date: 20160908
  Transmission Date: 20161109
  Serious: Yes (Other)
  Sender: FDA-Public Use
  Company Number: US-GLAXOSMITHKLINE-US2016GSK130483

PATIENT
  Sex: Female

DRUGS (1)
  1. TANZEUM [Suspect]
     Active Substance: ALBIGLUTIDE
     Indication: TYPE 2 DIABETES MELLITUS
     Dosage: 50 MG, WE
     Route: 042
     Dates: start: 201601

REACTIONS (6)
  - Pain [Unknown]
  - Malaise [Unknown]
  - Blood glucose increased [Unknown]
  - Drug ineffective [Unknown]
  - Protein urine present [Unknown]
  - Joint dislocation [Not Recovered/Not Resolved]

NARRATIVE: CASE EVENT DATE: 2016
